FAERS Safety Report 18577574 (Version 8)
Quarter: 2024Q2

REPORT INFORMATION
  Report Type: Other
  Country: BG (occurrence: None)
  Receive Date: 20201203
  Receipt Date: 20240610
  Transmission Date: 20240716
  Serious: Yes (Hospitalization)
  Sender: FDA-Public Use
  Company Number: BG-ROCHE-2713411

PATIENT
  Age: 27 Year
  Sex: Male
  Weight: 65 kg

DRUGS (27)
  1. OCRELIZUMAB [Suspect]
     Active Substance: OCRELIZUMAB
     Indication: Relapsing-remitting multiple sclerosis
     Dosage: 300 MG/250 ML; TOTAL VOLUME ADMINISTERED (ML): 250 ML?300 MG AT DAY 0 AND 14, THEN 600 MG IN 6 MONTH
     Route: 042
     Dates: start: 20200312, end: 20200312
  2. OCRELIZUMAB [Suspect]
     Active Substance: OCRELIZUMAB
     Dosage: 300 MG/250 ML; TOTAL VOLUME ADMINISTERED (ML): 250 ML
     Route: 042
     Dates: start: 20200327, end: 20200327
  3. OCRELIZUMAB [Suspect]
     Active Substance: OCRELIZUMAB
     Dosage: 600 MG/500 ML; TOTAL VOLUME ADMINISTERED (ML): 500
     Route: 042
     Dates: start: 20201002, end: 20201002
  4. OCRELIZUMAB [Suspect]
     Active Substance: OCRELIZUMAB
     Dosage: 600 MG/500 ML; TOTAL VOLUME ADMINISTERED (ML): 500
     Route: 042
     Dates: start: 20210414, end: 20210414
  5. OCRELIZUMAB [Suspect]
     Active Substance: OCRELIZUMAB
     Dosage: TOTAL VOLUME ADMINISTERED (ML): 500
     Route: 042
     Dates: start: 20211029, end: 20211029
  6. OCRELIZUMAB [Suspect]
     Active Substance: OCRELIZUMAB
     Dosage: TOTAL VOLUME ADMINISTERED (ML): 500
     Route: 042
     Dates: start: 20220512, end: 20220512
  7. OCRELIZUMAB [Suspect]
     Active Substance: OCRELIZUMAB
     Dosage: TOTAL VOLUME ADMINISTERED (ML): 500
     Route: 042
     Dates: start: 20220512, end: 20220512
  8. OCRELIZUMAB [Suspect]
     Active Substance: OCRELIZUMAB
     Dosage: TOTAL VOLUME ADMINISTERED (ML): 500
     Route: 042
     Dates: start: 20221115, end: 20221115
  9. OCRELIZUMAB [Suspect]
     Active Substance: OCRELIZUMAB
     Dosage: TOTAL VOLUME ADMINISTERED (ML): 500
     Route: 042
     Dates: start: 20230516, end: 20230516
  10. OCRELIZUMAB [Suspect]
     Active Substance: OCRELIZUMAB
     Dosage: TOTAL VOLUME ADMINISTERED (ML): 500
     Route: 042
     Dates: start: 20231121, end: 20231121
  11. OCRELIZUMAB [Suspect]
     Active Substance: OCRELIZUMAB
     Dosage: TOTAL VOLUME ADMINISTERED (ML): 500
     Route: 042
     Dates: start: 20240528, end: 20240528
  12. METHYLPREDNISOLONE [Concomitant]
     Active Substance: METHYLPREDNISOLONE
     Indication: Premedication
     Route: 042
     Dates: start: 20200312, end: 20200312
  13. METHYLPREDNISOLONE [Concomitant]
     Active Substance: METHYLPREDNISOLONE
     Route: 042
     Dates: start: 20200327, end: 20200327
  14. METHYLPREDNISOLONE [Concomitant]
     Active Substance: METHYLPREDNISOLONE
     Route: 042
     Dates: start: 20201002, end: 20201002
  15. METHYLPREDNISOLONE [Concomitant]
     Active Substance: METHYLPREDNISOLONE
     Route: 042
     Dates: start: 20210414, end: 20210414
  16. ACETAMINOPHEN [Concomitant]
     Active Substance: ACETAMINOPHEN
     Indication: Premedication
     Route: 048
     Dates: start: 20200312, end: 20200312
  17. ACETAMINOPHEN [Concomitant]
     Active Substance: ACETAMINOPHEN
     Route: 048
     Dates: start: 20200327, end: 20200327
  18. ACETAMINOPHEN [Concomitant]
     Active Substance: ACETAMINOPHEN
     Route: 048
     Dates: start: 20201002, end: 20201002
  19. ACETAMINOPHEN [Concomitant]
     Active Substance: ACETAMINOPHEN
     Route: 048
     Dates: start: 20210414, end: 20210414
  20. MANNITOL [Concomitant]
     Active Substance: MANNITOL
     Indication: Epilepsy
     Route: 042
     Dates: start: 20210113
  21. ASCORBIC ACID [Concomitant]
     Active Substance: ASCORBIC ACID
     Indication: Epilepsy
     Route: 048
     Dates: start: 20210113
  22. DEXAMETHASONE [Concomitant]
     Active Substance: DEXAMETHASONE
     Indication: Epilepsy
     Route: 042
     Dates: start: 20210113
  23. VALPROATE SODIUM [Concomitant]
     Active Substance: VALPROATE SODIUM
     Indication: Epilepsy
     Route: 048
     Dates: start: 20210113
  24. ACETAMINOPHEN [Concomitant]
     Active Substance: ACETAMINOPHEN
     Indication: Epilepsy
     Route: 042
     Dates: start: 20210113, end: 20210119
  25. NADROPARIN CALCIUM [Concomitant]
     Active Substance: NADROPARIN CALCIUM
     Indication: Epilepsy
     Route: 058
     Dates: start: 20210113, end: 20210119
  26. CORMAGNESIN [Concomitant]
     Indication: Epilepsy
     Route: 048
     Dates: start: 20210113, end: 20210119
  27. ALLERGOSAN (BULGARIA) [Concomitant]
     Indication: Premedication
     Route: 042
     Dates: start: 20200312, end: 20200312

REACTIONS (2)
  - Status epilepticus [Recovered/Resolved]
  - COVID-19 [Recovered/Resolved]

NARRATIVE: CASE EVENT DATE: 20201102
